FAERS Safety Report 8563513-7 (Version None)
Quarter: 2012Q3

REPORT INFORMATION
  Report Type: 
  Country: None (occurrence: None)
  Receive Date: 20120802
  Receipt Date: 20120726
  Transmission Date: 20120928
  Serious: Yes (Other)
  Sender: FDA-Public Use
  Company Number: AT-UCBSA-062756

PATIENT
  Age: 22 Year

DRUGS (6)
  1. VENLAFAXINE [Concomitant]
  2. LORAZEPAM [Concomitant]
  3. MADOPAR [Concomitant]
     Dosage: 100 MG/25 MG
  4. XYZAL [Suspect]
     Indication: HYPERSENSITIVITY
  5. KEPPRA [Concomitant]
  6. KEPPRA [Concomitant]
     Dosage: 500 MG: 0.5 DF 2 TIMES A DAY

REACTIONS (1)
  - EPILEPSY [None]
